FAERS Safety Report 4949209-9 (Version None)
Quarter: 2006Q1

REPORT INFORMATION
  Report Type: 
  Country: None (occurrence: None)
  Receive Date: 20060321
  Receipt Date: 20060309
  Transmission Date: 20060701
  Serious: Yes (Hospitalization)
  Sender: FDA-Public Use
  Company Number: US-SANOFI-SYNTHELABO-A03200601319

PATIENT
  Sex: Male
  Weight: 81.63 kg

DRUGS (6)
  1. PLAVIX [Suspect]
     Indication: STENT PLACEMENT
     Route: 048
     Dates: start: 20040101, end: 20060110
  2. PLAVIX [Suspect]
     Route: 048
     Dates: start: 20060119, end: 20060201
  3. ASPIRIN [Concomitant]
     Route: 048
  4. CARDIZEM [Concomitant]
     Route: 048
  5. PRAVACHOL [Concomitant]
     Route: 048
  6. NEXIUM [Concomitant]
     Route: 048

REACTIONS (6)
  - ARTERIAL THROMBOSIS [None]
  - CARDIAC ARREST [None]
  - DRUG INEFFECTIVE [None]
  - MYOCARDIAL INFARCTION [None]
  - PERICARDITIS [None]
  - SEPTIC SHOCK [None]
